FAERS Safety Report 7824571-8 (Version None)
Quarter: 2011Q4

REPORT INFORMATION
  Report Type: 
  Country: None (occurrence: None)
  Receive Date: 20111019
  Receipt Date: 20111006
  Transmission Date: 20120403
  Serious: Yes (Other)
  Sender: FDA-Public Use
  Company Number: CA-ELI_LILLY_AND_COMPANY-CA201105008333

PATIENT
  Age: 16 Year
  Sex: Male

DRUGS (3)
  1. PROZAC [Suspect]
     Indication: DEPRESSION
     Dosage: UNK UNK, UNKNOWN
     Dates: start: 20090601, end: 20090601
  2. PROZAC [Suspect]
     Dosage: UNK, UNKNOWN
     Dates: start: 20090601, end: 20090101
  3. PROZAC [Suspect]
     Dosage: UNK, UNKNOWN
     Dates: start: 20090101, end: 20090101

REACTIONS (10)
  - OFF LABEL USE [None]
  - MENTAL IMPAIRMENT [None]
  - HOMICIDE [None]
  - MANIA [None]
  - CONDITION AGGRAVATED [None]
  - ANGER [None]
  - SUICIDE ATTEMPT [None]
  - SELF INJURIOUS BEHAVIOUR [None]
  - AGITATION [None]
  - FEELING ABNORMAL [None]
